FAERS Safety Report 16611927 (Version 2)
Quarter: 2019Q3

REPORT INFORMATION
  Report Type: Spontaneous
  Country: US (occurrence: US)
  Receive Date: 20190722
  Receipt Date: 20190817
  Transmission Date: 20191004
  Serious: No
  Sender: FDA-Public Use
  Company Number: US-009507513-1907USA003750

PATIENT
  Age: 67 Year
  Sex: Female

DRUGS (1)
  1. DULERA [Suspect]
     Active Substance: FORMOTEROL FUMARATE DIHYDRATE\MOMETASONE FUROATE
     Dosage: 2 DOSAGE FORM, BID

REACTIONS (4)
  - Incorrect dose administered [Unknown]
  - Product quality issue [Unknown]
  - No adverse event [Unknown]
  - Poor quality device used [Unknown]

NARRATIVE: CASE EVENT DATE: 20190702
